FAERS Safety Report 19985380 (Version 1)
Quarter: 2021Q4

REPORT INFORMATION
  Report Type: Spontaneous
  Country: US (occurrence: US)
  Receive Date: 20211022
  Receipt Date: 20211022
  Transmission Date: 20220303
  Serious: No
  Sender: FDA-Public Use
  Company Number: None

PATIENT
  Age: 45 Year
  Sex: Male
  Weight: 93 kg

DRUGS (1)
  1. BAMLANIVIMAB\ETESEVIMAB [Suspect]
     Active Substance: BAMLANIVIMAB\ETESEVIMAB
     Indication: SARS-CoV-2 test positive
     Route: 042
     Dates: start: 20211015, end: 20211015

REACTIONS (5)
  - Flushing [None]
  - Nausea [None]
  - Headache [None]
  - Refusal of treatment by patient [None]
  - Infusion related reaction [None]

NARRATIVE: CASE EVENT DATE: 20211015
